FAERS Safety Report 4591532-4 (Version None)
Quarter: 2005Q1

REPORT INFORMATION
  Report Type: 
  Country: None (occurrence: None)
  Receive Date: 20050223
  Receipt Date: 20050223
  Transmission Date: 20050727
  Serious: Yes (Life-Threatening, Hospitalization)
  Sender: FDA-Public Use
  Company Number: None

PATIENT
  Age: 71 Year
  Sex: Male
  Weight: 124 kg

DRUGS (1)
  1. SPIRONOLACTONE [Suspect]
     Indication: CARDIOMYOPATHY
     Dosage: 25 MG PO BID
     Route: 048
     Dates: start: 20040326, end: 20041226

REACTIONS (6)
  - ANURIA [None]
  - BLOOD POTASSIUM INCREASED [None]
  - INTERNATIONAL NORMALISED RATIO INCREASED [None]
  - OEDEMA PERIPHERAL [None]
  - RENAL FAILURE ACUTE [None]
  - UNEVALUABLE EVENT [None]
